FAERS Safety Report 21713159 (Version 2)
Quarter: 2022Q4

REPORT INFORMATION
  Report Type: Report from Study
  Country: FI (occurrence: None)
  Receive Date: 20221212
  Receipt Date: 20221230
  Transmission Date: 20230112
  Serious: Yes (Death, Hospitalization)
  Sender: FDA-Public Use
  Company Number: FI-ROCHE-3235653

PATIENT
  Age: 80 Year
  Sex: Male

DRUGS (11)
  1. RITUXIMAB [Suspect]
     Active Substance: RITUXIMAB
     Indication: Diffuse large B-cell lymphoma
     Dosage: DAY 1, CYCLE 1. 1400 MG S C OR 375 MG/M2 I. V. CYCLES 2-6
     Route: 042
     Dates: start: 20220727, end: 20221109
  2. CYCLOPHOSPHAMIDE [Suspect]
     Active Substance: CYCLOPHOSPHAMIDE
     Indication: Diffuse large B-cell lymphoma
     Dosage: DAY 1, CYCLES 1-6
     Route: 042
     Dates: start: 20220727, end: 20221109
  3. DOXORUBICIN [Suspect]
     Active Substance: DOXORUBICIN
     Indication: Diffuse large B-cell lymphoma
     Dosage: DAY 1, CYCLES 1-6
     Route: 042
     Dates: start: 20220727, end: 20221109
  4. VINCRISTINE [Suspect]
     Active Substance: VINCRISTINE
     Indication: Diffuse large B-cell lymphoma
     Dosage: (TOTAL DOSE), DAY 1, CYCLES 1-6
     Route: 042
     Dates: start: 20220727, end: 20221109
  5. PREDNISONE [Suspect]
     Active Substance: PREDNISONE
     Indication: Diffuse large B-cell lymphoma
     Dosage: DAYS 1-5, , CYCLES 1-6
     Route: 048
     Dates: start: 20220727, end: 20221109
  6. BISOPROLOL [Concomitant]
     Active Substance: BISOPROLOL
  7. LOSARTAN [Concomitant]
     Active Substance: LOSARTAN
  8. SIMVASTATIN [Concomitant]
     Active Substance: SIMVASTATIN
  9. AMLODIPINE [Concomitant]
     Active Substance: AMLODIPINE BESYLATE
  10. SULFAMETHOXAZOLE\TRIMETHOPRIM [Concomitant]
     Active Substance: SULFAMETHOXAZOLE\TRIMETHOPRIM
  11. DABIGATRAN ETEXILATE [Concomitant]
     Active Substance: DABIGATRAN ETEXILATE

REACTIONS (3)
  - COVID-19 [Recovered/Resolved]
  - Pneumonia [Fatal]
  - Sepsis [Fatal]

NARRATIVE: CASE EVENT DATE: 20221206
